FAERS Safety Report 5232556-3 (Version None)
Quarter: 2007Q1

REPORT INFORMATION
  Report Type: 
  Country: None (occurrence: None)
  Receive Date: 20070207
  Receipt Date: 20070130
  Transmission Date: 20070707
  Serious: Yes (Disabling, Congenital Anomaly)
  Sender: FDA-Public Use
  Company Number: EG-GLAXOSMITHKLINE-B0457214A

PATIENT
  Sex: Male

DRUGS (1)
  1. LAMICTAL [Suspect]

REACTIONS (2)
  - FACIAL PALSY [None]
  - TERATOGENICITY [None]
